FAERS Safety Report 11110086 (Version 2)
Quarter: 2015Q2

REPORT INFORMATION
  Report Type: Spontaneous
  Country: US (occurrence: US)
  Receive Date: 20150513
  Receipt Date: 20150522
  Transmission Date: 20150821
  Serious: No
  Sender: FDA-Public Use
  Company Number: US-PFIZER INC-2015159780

PATIENT
  Age: 77 Year
  Sex: Male
  Weight: 77 kg

DRUGS (6)
  1. LISINOPRIL. [Concomitant]
     Active Substance: LISINOPRIL
     Dosage: 12.5 MG, DAILY
     Route: 048
  2. PLAVIX [Concomitant]
     Active Substance: CLOPIDOGREL BISULFATE
     Dosage: 75 MG, DAILY
     Route: 048
  3. ATORVASTATIN CALCIUM. [Suspect]
     Active Substance: ATORVASTATIN CALCIUM
     Dosage: 20 MG, UNK
  4. TOPROL XL [Concomitant]
     Active Substance: METOPROLOL SUCCINATE
     Dosage: 12.5 MG, DAILY
     Route: 048
  5. ATORVASTATIN CALCIUM. [Suspect]
     Active Substance: ATORVASTATIN CALCIUM
     Dosage: 40 MG, 1X/DAY
  6. ASPIRIN. [Concomitant]
     Active Substance: ASPIRIN
     Dosage: 81 MG, DAILY
     Route: 048

REACTIONS (8)
  - Abnormal dreams [Recovered/Resolved]
  - Hypoacusis [Unknown]
  - Product substitution issue [Unknown]
  - Inflammation [Recovered/Resolved]
  - Drug ineffective [Unknown]
  - Sinusitis [Unknown]
  - Swelling face [Recovered/Resolved]
  - Reaction to drug excipients [Unknown]
